FAERS Safety Report 9749972 (Version 1)
Quarter: 2013Q4

REPORT INFORMATION
  Report Type: Spontaneous
  Country: AU (occurrence: AU)
  Receive Date: 20131212
  Receipt Date: 20131212
  Transmission Date: 20140711
  Serious: Yes (Hospitalization)
  Sender: FDA-Public Use
  Company Number: AU-PURDUE-USA-2013-0109466

PATIENT
  Age: 55 Year
  Sex: Male

DRUGS (4)
  1. OXYCONTIN (NDA 22-272) [Suspect]
     Indication: FEELING OF RELAXATION
     Dosage: UNKNOWN
     Route: 065
     Dates: start: 2004
  2. OXYCONTIN (NDA 22-272) [Suspect]
     Indication: INSOMNIA
  3. XANAX [Suspect]
     Indication: FEELING OF RELAXATION
     Dosage: UNKNOWN
     Route: 065
     Dates: start: 2004
  4. XANAX [Suspect]
     Indication: INSOMNIA

REACTIONS (4)
  - Homicide [Unknown]
  - Paranoia [Unknown]
  - Delusion [Unknown]
  - Mental impairment [Unknown]
